FAERS Safety Report 6126774-X (Version None)
Quarter: 2009Q1

REPORT INFORMATION
  Report Type: 
  Country: None (occurrence: None)
  Receive Date: 20090320
  Receipt Date: 20090312
  Transmission Date: 20090719
  Serious: Yes (Hospitalization)
  Sender: FDA-Public Use
  Company Number: US-JNJFOC-20090304114

PATIENT
  Sex: Female

DRUGS (7)
  1. TOPAMAX [Suspect]
     Indication: INTERCOSTAL NEURALGIA
     Route: 048
  2. OPANA ER [Suspect]
     Indication: BACK PAIN
     Route: 048
  3. OPANA [Suspect]
     Indication: BACK PAIN
     Route: 048
  4. XANAX [Suspect]
     Indication: DRUG USE FOR UNKNOWN INDICATION
     Route: 048
  5. PHENERGAN [Suspect]
     Indication: NAUSEA
  6. AMBIEN [Suspect]
     Indication: INSOMNIA
     Route: 048
  7. LUNESTA [Suspect]
     Indication: INSOMNIA

REACTIONS (5)
  - BLASTOCYSTIS INFECTION [None]
  - CLOSTRIDIUM DIFFICILE COLITIS [None]
  - DEPRESSED LEVEL OF CONSCIOUSNESS [None]
  - MULTIPLE DRUG OVERDOSE ACCIDENTAL [None]
  - URINARY TRACT INFECTION FUNGAL [None]
